FAERS Safety Report 6581249-9 (Version None)
Quarter: 2010Q1

REPORT INFORMATION
  Report Type: 
  Country: None (occurrence: None)
  Receive Date: 20100215
  Receipt Date: 20100203
  Transmission Date: 20100710
  Serious: Yes (Hospitalization, Other)
  Sender: FDA-Public Use
  Company Number: RU-BAYER-200939490GPV

PATIENT
  Age: 21 Year
  Sex: Female

DRUGS (1)
  1. MIRENA [Suspect]
     Indication: CONTRACEPTION
     Route: 015
     Dates: start: 20090820, end: 20091127

REACTIONS (9)
  - ABDOMINAL PAIN LOWER [None]
  - ABORTION INFECTED [None]
  - ANTEPARTUM HAEMORRHAGE [None]
  - INFECTION [None]
  - KERATITIS [None]
  - MEDICAL DEVICE COMPLICATION [None]
  - PNEUMONIA [None]
  - PREGNANCY WITH CONTRACEPTIVE DEVICE [None]
  - PYREXIA [None]
